FAERS Safety Report 19683090 (Version 1)
Quarter: 2021Q3

REPORT INFORMATION
  Report Type: Spontaneous
  Country: ES (occurrence: ES)
  Receive Date: 20210811
  Receipt Date: 20210811
  Transmission Date: 20211014
  Serious: Yes (Other)
  Sender: FDA-Public Use
  Company Number: ES-AUROBINDO-AUR-APL-2021-034011

PATIENT
  Age: 51 Year
  Sex: Male
  Weight: 110 kg

DRUGS (4)
  1. METFORMIN [Suspect]
     Active Substance: METFORMIN HYDROCHLORIDE
     Dosage: UNK (DOSE REDUCED)
     Route: 048
  2. INSULIN GLARGINE [Suspect]
     Active Substance: INSULIN GLARGINE
     Indication: TYPE 2 DIABETES MELLITUS
     Dosage: 10 INTERNATIONAL UNIT, ONCE A DAY
     Route: 058
     Dates: start: 20210610
  3. JARDIANCE [Suspect]
     Active Substance: EMPAGLIFLOZIN
     Indication: TYPE 2 DIABETES MELLITUS
     Dosage: 1 DOSAGE FORM, ONCE A DAY
     Route: 048
  4. METFORMIN [Suspect]
     Active Substance: METFORMIN HYDROCHLORIDE
     Indication: TYPE 2 DIABETES MELLITUS
     Dosage: UNK UNK, 3 TIMES A DAY (0.5 ? 0.5 ? 0.5 ? 0.5)
     Route: 048

REACTIONS (13)
  - Headache [Unknown]
  - Blood glucose decreased [Unknown]
  - Somnolence [Recovered/Resolved]
  - Gastrointestinal injury [Unknown]
  - Flatulence [Recovering/Resolving]
  - Thirst [Unknown]
  - Nausea [Unknown]
  - Hunger [Unknown]
  - Weight decreased [Not Recovered/Not Resolved]
  - Appetite disorder [Unknown]
  - Cold sweat [Unknown]
  - Blood glucose fluctuation [Recovered/Resolved]
  - Colitis [Recovering/Resolving]

NARRATIVE: CASE EVENT DATE: 2021
